FAERS Safety Report 6089155-3 (Version None)
Quarter: 2009Q1

REPORT INFORMATION
  Report Type: 
  Country: None (occurrence: None)
  Receive Date: 20090220
  Receipt Date: 20090220
  Transmission Date: 20090719
  Serious: Yes (Life-Threatening)
  Sender: FDA-Public Use
  Company Number: None

PATIENT
  Age: 19 Year
  Sex: Male
  Weight: 81.6475 kg

DRUGS (2)
  1. EFFEXOR [Suspect]
     Indication: ANXIETY
     Dosage: 100MG BID X, TAKEN IN AM PO
     Route: 048
     Dates: start: 20090201, end: 20090212
  2. EFFEXOR [Suspect]
     Indication: DEPRESSION
     Dosage: 100MG BID X, TAKEN IN AM PO
     Route: 048
     Dates: start: 20090201, end: 20090212

REACTIONS (3)
  - HEART RATE INCREASED [None]
  - MYDRIASIS [None]
  - PALPITATIONS [None]
